FAERS Safety Report 7783435-9 (Version None)
Quarter: 2011Q3

REPORT INFORMATION
  Report Type: 
  Country: None (occurrence: None)
  Receive Date: 20110928
  Receipt Date: 20110928
  Transmission Date: 20111222
  Serious: Yes (Other)
  Sender: FDA-Public Use
  Company Number: None

PATIENT
  Sex: Female
  Weight: 77.11 kg

DRUGS (1)
  1. BOTOX [Suspect]
     Indication: MIGRAINE

REACTIONS (5)
  - VISION BLURRED [None]
  - FEELING ABNORMAL [None]
  - ASTHENIA [None]
  - DYSPHONIA [None]
  - NECK PAIN [None]
